FAERS Safety Report 13291751 (Version 1)
Quarter: 2017Q1

REPORT INFORMATION
  Report Type: Spontaneous
  Country: US (occurrence: US)
  Receive Date: 20170303
  Receipt Date: 20170303
  Transmission Date: 20170428
  Serious: No
  Sender: FDA-Public Use
  Company Number: US-DEPOMED, INC.-US-2016DEP009819

PATIENT

DRUGS (6)
  1. XTANDI [Suspect]
     Active Substance: ENZALUTAMIDE
     Dosage: 40 MG, 1-3 TIMES WEEKLY
     Route: 048
  2. LUPRON [Concomitant]
     Active Substance: LEUPROLIDE ACETATE
     Indication: PRODUCT USED FOR UNKNOWN INDICATION
     Dosage: UNK
  3. XTANDI [Suspect]
     Active Substance: ENZALUTAMIDE
     Dosage: 80 MG, QD
     Route: 048
  4. GRALISE [Suspect]
     Active Substance: GABAPENTIN
     Indication: HERPES ZOSTER
     Dosage: 1 G, UNK
  5. XTANDI [Suspect]
     Active Substance: ENZALUTAMIDE
     Dosage: 80 MG, ONCE DAILY
     Route: 048
  6. XTANDI [Suspect]
     Active Substance: ENZALUTAMIDE
     Indication: PROSTATE CANCER
     Dosage: 160 MG, ONCE DAILY
     Route: 048

REACTIONS (9)
  - Drug intolerance [Unknown]
  - Fatigue [Not Recovered/Not Resolved]
  - Syncope [Recovered/Resolved]
  - Product use issue [Unknown]
  - Dysstasia [Recovering/Resolving]
  - Dizziness [Unknown]
  - Treatment noncompliance [Unknown]
  - Drug dose omission [Unknown]
  - Nausea [Unknown]
